FAERS Safety Report 8521976 (Version 3)
Quarter: 2012Q4

REPORT INFORMATION
  Report Type: Report from Study
  Country: BR (occurrence: BR)
  Receive Date: 20120419
  Receipt Date: 20121212
  Transmission Date: 20130627
  Serious: Yes (Hospitalization)
  Sender: FDA-Public Use
  Company Number: BR-VERTEX PHARMACEUTICALS INC.-000000000000000509

PATIENT
  Age: 66 Year
  Sex: Male
  Weight: 74 kg

DRUGS (3)
  1. VX-950 (TELAPREVIR) [Suspect]
     Indication: HEPATITIS C
     Dosage: 750 mg, tid
     Route: 048
     Dates: start: 20120125, end: 20120413
  2. RIBAVIRIN [Concomitant]
     Indication: HEPATITIS C
     Dosage: 500 mg, bid
     Route: 048
     Dates: start: 20120125
  3. PEGINTERFERON ALFA-2A [Concomitant]
     Indication: HEPATITIS C
     Dosage: 180 ?g, qw
     Route: 065
     Dates: start: 20120125

REACTIONS (1)
  - Skin infection [Recovered/Resolved]
